FAERS Safety Report 14780229 (Version 4)
Quarter: 2020Q1

REPORT INFORMATION
  Report Type: Report from Study
  Country: CN (occurrence: CN)
  Receive Date: 20180419
  Receipt Date: 20200319
  Transmission Date: 20200409
  Serious: Yes (Hospitalization)
  Sender: FDA-Public Use
  Company Number: CN-AMGEN-CHNCT2018052499

PATIENT
  Age: 51 Year
  Sex: Female
  Weight: 53.5 kg

DRUGS (21)
  1. SODIUM CHLORIDE. [Concomitant]
     Active Substance: SODIUM CHLORIDE
     Dosage: 250 MILLILITER
     Route: 042
     Dates: start: 20180328, end: 20180410
  2. TROPISETRON [Concomitant]
     Active Substance: TROPISETRON
     Dosage: 5 MICROGRAM TO 5 MILLIGRAM
     Route: 042
     Dates: start: 20180402, end: 20180419
  3. OMEPRAZOLE SODIUM [Concomitant]
     Active Substance: OMEPRAZOLE SODIUM
     Dosage: 40-60 MILLIGRAM
     Route: 042
     Dates: start: 20180414, end: 20180430
  4. METOCLOPRAMIDE. [Concomitant]
     Active Substance: METOCLOPRAMIDE
     Dosage: 5 MILLIGRAM
     Route: 048
     Dates: start: 20180414, end: 20180420
  5. SODIUM BICARBONATE. [Concomitant]
     Active Substance: SODIUM BICARBONATE
     Dosage: 150 MILLILITER
     Route: 042
     Dates: start: 20180327, end: 20180413
  6. CALCIUM CARBONATE/VITAMIN D3 [Concomitant]
     Active Substance: CALCIUM CARBONATE\CHOLECALCIFEROL
     Dosage: 1200 MILLIGRAM
     Route: 048
     Dates: start: 20180403, end: 20180420
  7. MANNITOL. [Concomitant]
     Active Substance: MANNITOL
     Dosage: 25 GRAM
     Route: 042
     Dates: start: 20180408, end: 20180418
  8. AMINO ACIDS NOS W/FATS NOS/GLUCOSE [Concomitant]
     Dosage: 1440 MILLILITER
     Route: 042
     Dates: start: 20180409, end: 20180420
  9. OMEPRAZOLE. [Concomitant]
     Active Substance: OMEPRAZOLE
     Dosage: 20 MILLIGRAM
     Route: 048
     Dates: start: 20180403, end: 20180411
  10. PALONOSETRON. [Concomitant]
     Active Substance: PALONOSETRON HYDROCHLORIDE
     Dosage: 0.25 MICROGRAM-0.25 MILLIGRAM
     Route: 042
     Dates: start: 20180409, end: 20180419
  11. CREATINE PHOSPHATE SODIUM [Concomitant]
     Active Substance: CREATINE
     Dosage: 1 GRAM
     Route: 042
     Dates: start: 20180327, end: 20180403
  12. MECOBALAMIN [Concomitant]
     Active Substance: METHYLCOBALAMIN
     Dosage: 500 MICROGRAM AND 0.5 MILLIGRAM
     Dates: start: 20180402, end: 20180521
  13. LIDOCAINE. [Concomitant]
     Active Substance: LIDOCAINE
     Dosage: 5 MILLILITER
     Route: 030
     Dates: start: 20180326, end: 20180416
  14. CARFILZOMIB [Suspect]
     Active Substance: CARFILZOMIB
     Indication: PLASMA CELL MYELOMA
     Dosage: 43 MILLIGRAM, PER CHEMO REGIM
     Route: 042
     Dates: start: 20180328, end: 20180410
  15. ACICLOVIR [Concomitant]
     Active Substance: ACYCLOVIR
     Dosage: 800 MILLIGRAM AND 1 UNK (EYE DROPS)
     Route: 048
     Dates: start: 20180326, end: 20180418
  16. DEXAMETHASONE. [Suspect]
     Active Substance: DEXAMETHASONE
     Indication: PLASMA CELL MYELOMA
     Dosage: 20 MILLIGRAM, PER CHEMO REGIM
     Route: 042
     Dates: start: 20180328, end: 20180410
  17. GLUCOSE W/SODIUM CHLORIDE [Concomitant]
     Dosage: 500 MILLILITER
     Route: 042
     Dates: start: 20180327, end: 20180413
  18. VITAMIN C [Concomitant]
     Active Substance: ASCORBIC ACID
     Dosage: 3 GRAM
     Route: 042
     Dates: start: 20180327, end: 20180413
  19. DIISOPROPYLAMINE DICHLOROACETATE [Concomitant]
     Dosage: 80 MILLIGRAM
     Route: 042
     Dates: start: 20180327, end: 20180420
  20. POTASSIUM CHLORIDE. [Concomitant]
     Active Substance: POTASSIUM CHLORIDE
     Dosage: 0.75-2 GRAM
     Route: 042
     Dates: start: 20180327, end: 20180428
  21. METRONIDAZOLE. [Concomitant]
     Active Substance: METRONIDAZOLE
     Dosage: 10 MILLILITER
     Route: 050
     Dates: start: 20180328

REACTIONS (1)
  - Soft tissue infection [Recovered/Resolved]

NARRATIVE: CASE EVENT DATE: 20180416
